FAERS Safety Report 16269401 (Version 1)
Quarter: 2019Q2

REPORT INFORMATION
  Report Type: Spontaneous
  Country: GB (occurrence: GB)
  Receive Date: 20190503
  Receipt Date: 20190503
  Transmission Date: 20190711
  Serious: Yes (Other)
  Sender: FDA-Public Use
  Company Number: GB-TEVA-2019-GB-1044433

PATIENT
  Age: 79 Year
  Sex: Female
  Weight: 50 kg

DRUGS (17)
  1. PREDNISOLONE. [Concomitant]
     Active Substance: PREDNISOLONE
     Dosage: 6 DOSAGE FORMS FOR EVERY 1 DAYS
     Dates: start: 20190121, end: 20190126
  2. OMEPRAZOLE. [Concomitant]
     Active Substance: OMEPRAZOLE
     Dosage: 40MILLIGRAM FOR EVERY 1 DAYS
     Dates: start: 20170802
  3. DONEPEZIL HYDROCHLORIDE. [Concomitant]
     Active Substance: DONEPEZIL HYDROCHLORIDE
     Dosage: 1 DOSAGE FORM FOR EVERY 1 DAYS AT NIGHT
     Dates: start: 20170802
  4. NUTRITIONAL SUPPLEMENT [Concomitant]
     Active Substance: DIETARY SUPPLEMENT
     Dosage: 2 DOSAGE FORMS FOR EVERY 1 DAY
     Dates: start: 20190218, end: 20190318
  5. MIRTAZAPINE. [Concomitant]
     Active Substance: MIRTAZAPINE
     Dosage: 1 DOSAGE FORMS FOR EVERY 1 DAYS AT NIGHT
     Dates: start: 20171023
  6. AMOXICILLIN. [Suspect]
     Active Substance: AMOXICILLIN
     Dosage: 1500 MILLIGRAM FOR EVERY 1 DAY
     Dates: start: 20190318, end: 20190325
  7. ALENDRONIC ACID [Concomitant]
     Active Substance: ALENDRONIC ACID
     Dosage: 70 MILLIGRAM FOR EVERY 1 WEEK (100ML BOTTLE)
     Dates: start: 20170626
  8. PERMETHRIN. [Concomitant]
     Active Substance: PERMETHRIN
     Dosage: APPLY TO COOL, DRY SKIN AND ALLOW TO DRY
     Dates: start: 20190114, end: 20190121
  9. LACTULOSE. [Concomitant]
     Active Substance: LACTULOSE
     Dosage: TWO TO FOUR 5ML SPOONFULS TO BE TAKEN DAILY
     Dates: start: 20170626
  10. CETIRIZINE [Concomitant]
     Active Substance: CETIRIZINE HYDROCHLORIDE
     Dosage: 1 DOSAGE FORM FOR EVERY 1 DAY FOR 1 MONTH
     Dates: start: 20190121, end: 20190204
  11. HYDROCORTISONE. [Concomitant]
     Active Substance: HYDROCORTISONE
     Dosage: 2 DOSAGE FORMS FOR EVERY 1 DAY APPLY
     Dates: start: 20190109, end: 20190123
  12. CHLORPHENAMINE [Concomitant]
     Active Substance: CHLORPHENIRAMINE MALEATE
     Dosage: 10ML FOR EVERY 1 DAYS FOR 5-7 DAYS
     Dates: start: 20190326
  13. PARACETAMOL [Concomitant]
     Active Substance: ACETAMINOPHEN
     Dosage: TWO TO BE TAKEN EVERY 4-6 HOURS UP TO FOUR TIMES A DAY.
     Dates: start: 20170802
  14. COAL TAR. [Concomitant]
     Active Substance: COAL TAR
     Dosage: 2 DOSAGE FORMS FOR EVERY 1 DAYS APPLY - UNTIL NEEDED
     Dates: start: 20190121
  15. CROTAMITON [Concomitant]
     Active Substance: CROTAMITON
     Dosage: 2 DOSAGE FORMS FOR EVERY 1 DAY APPLY TO LOWER BACK
     Dates: start: 20190103, end: 20190117
  16. DERMOL [Concomitant]
     Active Substance: BENZALKONIUM CHLORIDE\CHLORHEXIDINE HYDROCHLORIDE\ISOPROPYL MYRISTATE\PARAFFIN
     Dosage: USE AS DIRECTED
     Dates: start: 20190109, end: 20190123
  17. FUSIDIC ACID [Concomitant]
     Active Substance: FUSIDIC ACID
     Dosage: APPLY TO TOE 2-3 X A DAY
     Dates: start: 20190218, end: 20190225

REACTIONS (1)
  - Eczema [Not Recovered/Not Resolved]

NARRATIVE: CASE EVENT DATE: 20190326
